APPROVED DRUG PRODUCT: DEXAMETHASONE SODIUM PHOSPHATE
Active Ingredient: DEXAMETHASONE SODIUM PHOSPHATE
Strength: EQ 4MG PHOSPHATE/ML
Dosage Form/Route: INJECTABLE;INJECTION
Application: A203129 | Product #001 | TE Code: AP
Applicant: FRESENIUS KABI USA LLC
Approved: Sep 30, 2015 | RLD: No | RS: No | Type: RX